FAERS Safety Report 7912167-9 (Version None)
Quarter: 2011Q4

REPORT INFORMATION
  Report Type: 
  Country: None (occurrence: None)
  Receive Date: 20111114
  Receipt Date: 20111104
  Transmission Date: 20120403
  Serious: Yes (Hospitalization, Disabling)
  Sender: FDA-Public Use
  Company Number: US-ACTELION-A-US2011-51787

PATIENT

DRUGS (2)
  1. TRACLEER [Suspect]
     Dosage: UNK
     Route: 048
     Dates: start: 20061003
  2. TRACLEER [Suspect]
     Indication: PULMONARY ARTERIAL HYPERTENSION
     Dosage: 62.5 MG, BID
     Route: 048
     Dates: start: 20101001

REACTIONS (3)
  - FALL [None]
  - COMPRESSION FRACTURE [None]
  - SURGERY [None]
